FAERS Safety Report 8911159 (Version 1)
Quarter: 2012Q4

REPORT INFORMATION
  Report Type: 
  Country: CA (occurrence: CA)
  Receive Date: 20121115
  Receipt Date: 20121115
  Transmission Date: 20130627
  Serious: Yes (Hospitalization, Other)
  Sender: FDA-Public Use
  Company Number: CA-AMGEN-CANSP2012070352

PATIENT
  Age: 64 Year
  Sex: Female

DRUGS (2)
  1. ENBREL [Suspect]
     Indication: RHEUMATOID ARTHRITIS
     Dosage: 50 mg, qwk
     Route: 058
     Dates: start: 200903, end: 201203
  2. PREDNISONE [Concomitant]
     Dosage: UNK

REACTIONS (3)
  - Colon cancer [Recovering/Resolving]
  - Hysterectomy [Unknown]
  - Hernia [Unknown]
